FAERS Safety Report 12775803 (Version 1)
Quarter: 2016Q3

REPORT INFORMATION
  Report Type: Spontaneous
  Country: US (occurrence: US)
  Receive Date: 20160923
  Receipt Date: 20160923
  Transmission Date: 20161109
  Serious: No
  Sender: FDA-Public Use
  Company Number: US-GE HEALTHCARE MEDICAL DIAGNOSTICS-INDT-PR-1604S-0004

PATIENT

DRUGS (2)
  1. INDIUM DTPA IN 111 [Suspect]
     Active Substance: INDIUM IN-111 PENTETATE DISODIUM
     Indication: DIAGNOSTIC PROCEDURE
  2. INDIUM DTPA IN 111 [Suspect]
     Active Substance: INDIUM IN-111 PENTETATE DISODIUM
     Indication: PRODUCT USED FOR UNKNOWN INDICATION
     Dosage: DOSE NOT REPORTED
     Route: 065
     Dates: start: 20160404, end: 20160404

REACTIONS (2)
  - Drug ineffective [Recovered/Resolved]
  - No adverse event [Recovered/Resolved]

NARRATIVE: CASE EVENT DATE: 20160404
